FAERS Safety Report 24847339 (Version 1)
Quarter: 2025Q1

REPORT INFORMATION
  Report Type: Spontaneous
  Country: US (occurrence: US)
  Receive Date: 20250116
  Receipt Date: 20250116
  Transmission Date: 20250409
  Serious: Yes (Other)
  Sender: REGENERON
  Company Number: US-REGENERON PHARMACEUTICALS, INC.-2025-015859

PATIENT
  Age: 77 Year
  Sex: Male

DRUGS (4)
  1. EYLEA HD [Suspect]
     Active Substance: AFLIBERCEPT
     Indication: Neovascular age-related macular degeneration
     Route: 031
     Dates: start: 202406, end: 202406
  2. EYLEA HD [Suspect]
     Active Substance: AFLIBERCEPT
     Route: 031
     Dates: start: 202407, end: 202407
  3. EYLEA HD [Suspect]
     Active Substance: AFLIBERCEPT
     Route: 031
     Dates: start: 202408, end: 202408
  4. EYLEA HD [Suspect]
     Active Substance: AFLIBERCEPT
     Dosage: UNK, Q8W, FORMULATION: HD VIAL
     Route: 031
     Dates: start: 2024

REACTIONS (6)
  - Neovascular age-related macular degeneration [Unknown]
  - Condition aggravated [Unknown]
  - Cataract [Unknown]
  - Visual impairment [Unknown]
  - Pseudophakia [Unknown]
  - Vitreous floaters [Unknown]

NARRATIVE: CASE EVENT DATE: 20250101
